FAERS Safety Report 25068734 (Version 1)
Quarter: 2025Q1

REPORT INFORMATION
  Report Type: Spontaneous
  Country: GB (occurrence: GB)
  Receive Date: 20250312
  Receipt Date: 20250312
  Transmission Date: 20250409
  Serious: Yes (Other)
  Sender: SANOFI AVENTIS
  Company Number: GB-SANOFI-02440168

PATIENT
  Age: 40 Year

DRUGS (1)
  1. DUPIXENT [Suspect]
     Active Substance: DUPILUMAB
     Indication: Dermatitis atopic
     Dates: start: 2016

REACTIONS (2)
  - Inflammatory bowel disease [Unknown]
  - Colectomy total [Unknown]

NARRATIVE: CASE EVENT DATE: 20230101
